FAERS Safety Report 15366616 (Version 1)
Quarter: 2018Q3

REPORT INFORMATION
  Report Type: Spontaneous
  Country: US (occurrence: US)
  Receive Date: 20180910
  Receipt Date: 20180910
  Transmission Date: 20181010
  Serious: No
  Sender: FDA-Public Use
  Company Number: US-GLAXOSMITHKLINE-US2018145300

PATIENT
  Age: 63 Year
  Sex: Male

DRUGS (2)
  1. FLUTICASONE NASAL SPRAY [Suspect]
     Active Substance: FLUTICASONE
     Indication: SEASONAL ALLERGY
  2. FLUTICASONE NASAL SPRAY [Suspect]
     Active Substance: FLUTICASONE
     Indication: MULTIPLE ALLERGIES
     Dosage: UNK
     Dates: start: 20180406, end: 20180512

REACTIONS (4)
  - Stomatitis [Unknown]
  - Anosmia [Unknown]
  - Adverse drug reaction [Unknown]
  - Back pain [Unknown]

NARRATIVE: CASE EVENT DATE: 20180505
